FAERS Safety Report 5103518-1 (Version None)
Quarter: 2006Q3

REPORT INFORMATION
  Report Type: 
  Country: None (occurrence: None)
  Receive Date: 20060913
  Receipt Date: 20060810
  Transmission Date: 20061208
  Serious: Yes (Hospitalization)
  Sender: FDA-Public Use
  Company Number: 2006SE04330

PATIENT
  Age: 30509 Day
  Sex: Female

DRUGS (8)
  1. BLOPRESS TABLETS 8 [Suspect]
     Indication: CARDIAC FAILURE
     Route: 048
     Dates: start: 20060427, end: 20060515
  2. PANALDINE [Suspect]
     Route: 048
     Dates: start: 20051001
  3. PANALDINE [Suspect]
     Route: 048
  4. TAKEPRON OD TABLETS 15 [Concomitant]
     Route: 048
     Dates: start: 20051001
  5. 8-HOUR BAYER [Concomitant]
     Route: 048
     Dates: start: 20051001
  6. LASIX [Concomitant]
     Route: 048
     Dates: start: 20051001
  7. ALDACTONE-A [Concomitant]
     Route: 048
     Dates: start: 20051001
  8. MAGLAX [Concomitant]
     Route: 048
     Dates: start: 20051001

REACTIONS (1)
  - DERMATITIS EXFOLIATIVE [None]
